FAERS Safety Report 18875038 (Version 3)
Quarter: 2021Q1

REPORT INFORMATION
  Report Type: Spontaneous
  Country: JP (occurrence: JP)
  Receive Date: 20210210
  Receipt Date: 20210217
  Transmission Date: 20210420
  Serious: Yes (Other)
  Sender: FDA-Public Use
  Company Number: JP-PFIZER INC-2021107015

PATIENT
  Age: 5 Decade
  Sex: Female
  Weight: 76.9 kg

DRUGS (7)
  1. ESTAZOLAM. [Concomitant]
     Active Substance: ESTAZOLAM
     Dosage: UNK
  2. SERTRALINE HCL [Suspect]
     Active Substance: SERTRALINE HYDROCHLORIDE
     Dosage: UNK
  3. PARACETAMOL [Concomitant]
     Active Substance: ACETAMINOPHEN
     Dosage: UNK
  4. ALLYLISOPROPYLACETYLUREA [Concomitant]
     Active Substance: APRONALIDE
     Dosage: UNK
  5. DUROTEP [Interacting]
     Active Substance: FENTANYL
     Indication: FRACTURE PAIN
     Dosage: 7 DF, SINGLE (DOSE RATE OF 0.6 MG/DAY)
     Route: 062
  6. PROMETHAZINE [Concomitant]
     Active Substance: PROMETHAZINE HYDROCHLORIDE
     Dosage: UNK
  7. CELECOXIB 200 MG [Concomitant]
     Active Substance: CELECOXIB
     Dosage: UNK

REACTIONS (2)
  - Drug interaction [Unknown]
  - Serotonin syndrome [Not Recovered/Not Resolved]
